FAERS Safety Report 6735904-8 (Version None)
Quarter: 2010Q2

REPORT INFORMATION
  Report Type: 
  Country: None (occurrence: None)
  Receive Date: 20100521
  Receipt Date: 20100516
  Transmission Date: 20101027
  Serious: Yes (Hospitalization)
  Sender: FDA-Public Use
  Company Number: A0860634A

PATIENT
  Sex: Male

DRUGS (2)
  1. AVANDIA [Suspect]
     Dosage: 4MG TWICE PER DAY
     Route: 048
     Dates: start: 20070101, end: 20080101
  2. ACTOS [Suspect]
     Dosage: 30MG UNKNOWN
     Route: 048
     Dates: start: 20080101

REACTIONS (7)
  - APPARENT DEATH [None]
  - BLOOD GLUCOSE DECREASED [None]
  - CYSTITIS [None]
  - DIABETIC COMA [None]
  - LIVER DISORDER [None]
  - LOSS OF CONSCIOUSNESS [None]
  - MEDICATION ERROR [None]
